FAERS Safety Report 8027198-0 (Version None)
Quarter: 2012Q1

REPORT INFORMATION
  Report Type: 
  Country: None (occurrence: None)
  Receive Date: 20120106
  Receipt Date: 20111222
  Transmission Date: 20120608
  Serious: Yes (Death, Hospitalization)
  Sender: FDA-Public Use
  Company Number: IT-CELGENEUS-083-C5013-10121789

PATIENT
  Sex: Male
  Weight: 75 kg

DRUGS (4)
  1. LENALIDOMIDE [Suspect]
     Indication: MULTIPLE MYELOMA
     Dosage: 7.5 MILLIGRAM
     Route: 048
     Dates: start: 20101005, end: 20101025
  2. PREDNISONE TAB [Suspect]
     Indication: MULTIPLE MYELOMA
     Route: 065
     Dates: start: 20080603, end: 20081106
  3. METOCLOPRAMIDE [Concomitant]
     Indication: NAUSEA
     Dosage: 20 MILLIGRAM
     Route: 041
     Dates: start: 20101028, end: 20101106
  4. MELPHALAN HYDROCHLORIDE [Suspect]
     Indication: MULTIPLE MYELOMA
     Route: 065
     Dates: start: 20080603, end: 20081106

REACTIONS (1)
  - COLON CANCER STAGE IV [None]
